FAERS Safety Report 13987361 (Version 4)
Quarter: 2018Q3

REPORT INFORMATION
  Report Type: Spontaneous
  Country: DE (occurrence: DE)
  Receive Date: 20170919
  Receipt Date: 20180808
  Transmission Date: 20181010
  Serious: Yes (Other)
  Sender: FDA-Public Use
  Company Number: DE-TEVA-805894GER

PATIENT
  Sex: Male
  Weight: 78 kg

DRUGS (9)
  1. CLOPIDOGREL [Concomitant]
     Active Substance: CLOPIDOGREL BISULFATE
     Dosage: 75 MILLIGRAM DAILY; 1?0?0
  2. PANTOPRAZOL [Concomitant]
     Active Substance: PANTOPRAZOLE SODIUM
     Dosage: 40 MILLIGRAM DAILY; 1?0?0
  3. HEPARIN?NATRIUM?25 000?RATIOPHARM [Suspect]
     Active Substance: HEPARIN SODIUM
     Dosage: 10000 IU (INTERNATIONAL UNIT) DAILY;
     Route: 065
     Dates: start: 20170828, end: 20170828
  4. PREGABALIN. [Concomitant]
     Active Substance: PREGABALIN
     Dosage: 50 MILLIGRAM DAILY; 1?0?0
  5. ATORVASTATIN [Concomitant]
     Active Substance: ATORVASTATIN
     Dosage: 40 MILLIGRAM DAILY; 0?0?1
  6. RAMIPRIL. [Concomitant]
     Active Substance: RAMIPRIL
     Dosage: 5 MILLIGRAM DAILY; 1?0?1
  7. AMLODIPIN 5 MG [Concomitant]
     Dosage: 2.5 MILLIGRAM DAILY; 0.5?0?0
  8. TRANEXAMIC ACID. [Suspect]
     Active Substance: TRANEXAMIC ACID
     Route: 065
     Dates: start: 20170828, end: 20170828
  9. DREISAVIT [Concomitant]
     Dosage: 1 DOSAGE FORMS DAILY; 1?0?0

REACTIONS (2)
  - Ventricular tachyarrhythmia [Unknown]
  - Blood pressure decreased [Unknown]

NARRATIVE: CASE EVENT DATE: 2017
